FAERS Safety Report 6640020-X (Version None)
Quarter: 2010Q1

REPORT INFORMATION
  Report Type: 
  Country: None (occurrence: None)
  Receive Date: 20100318
  Receipt Date: 20100308
  Transmission Date: 20100710
  Serious: Yes (Disabling)
  Sender: FDA-Public Use
  Company Number: PHHY2010JP13977

PATIENT
  Age: 78 Year
  Sex: Male

DRUGS (2)
  1. FAMVIR [Suspect]
     Dosage: 1500 MG, PER DAY
     Route: 048
     Dates: start: 20100216, end: 20100218
  2. GLEEVEC [Concomitant]
     Indication: CHRONIC MYELOID LEUKAEMIA

REACTIONS (12)
  - CHEST PAIN [None]
  - COUGH [None]
  - DEPRESSED LEVEL OF CONSCIOUSNESS [None]
  - DYSPNOEA [None]
  - ERYTHEMA [None]
  - HIATUS HERNIA [None]
  - LETHARGY [None]
  - LOBAR PNEUMONIA [None]
  - LUNG CONSOLIDATION [None]
  - OEDEMA PERIPHERAL [None]
  - PLEURAL EFFUSION [None]
  - PYREXIA [None]
